FAERS Safety Report 11627140 (Version 1)
Quarter: 2015Q4

REPORT INFORMATION
  Report Type: Spontaneous
  Country: US (occurrence: US)
  Receive Date: 20151013
  Receipt Date: 20151013
  Transmission Date: 20160304
  Serious: No
  Sender: FDA-Public Use
  Company Number: US-AMGEN-USASP2014078427

PATIENT
  Sex: Male

DRUGS (19)
  1. ATENOLOL. [Concomitant]
     Active Substance: ATENOLOL
     Dosage: UNK
  2. ASPIRIN                            /00002701/ [Concomitant]
     Active Substance: ASPIRIN
     Dosage: UNK
  3. HYDROCODONE [Concomitant]
     Active Substance: HYDROCODONE
     Dosage: UNK
  4. HYDROXYCHLOROQUINE [Concomitant]
     Active Substance: HYDROXYCHLOROQUINE
     Dosage: UNK
  5. PREDNISONE. [Concomitant]
     Active Substance: PREDNISONE
     Dosage: UNK
  6. SERTRALINE [Concomitant]
     Active Substance: SERTRALINE HYDROCHLORIDE
     Dosage: UNK
  7. LEVOTHYROXINE. [Concomitant]
     Active Substance: LEVOTHYROXINE
     Dosage: UNK
  8. CALCIUM [Concomitant]
     Active Substance: CALCIUM
     Dosage: UNK
  9. NORTRIPTYLINE [Concomitant]
     Active Substance: NORTRIPTYLINE
     Dosage: UNK
  10. FENTANYL. [Concomitant]
     Active Substance: FENTANYL
     Dosage: UNK
  11. VITAMIN D3 [Concomitant]
     Active Substance: CHOLECALCIFEROL
     Dosage: UNK
  12. NEUPOGEN [Suspect]
     Active Substance: FILGRASTIM
     Indication: WHITE BLOOD CELL DISORDER
     Dosage: 480 MCG, EVERY OTHER TUESDAY
     Route: 065
     Dates: start: 2014
  13. GABAPENTIN. [Concomitant]
     Active Substance: GABAPENTIN
     Dosage: UNK
  14. FLUNISOLIDE. [Concomitant]
     Active Substance: FLUNISOLIDE
     Dosage: UNK
  15. EZETIMIBE. [Concomitant]
     Active Substance: EZETIMIBE
     Dosage: UNK
  16. NAPROXEN. [Concomitant]
     Active Substance: NAPROXEN
     Dosage: UNK
  17. OMEPRAZOLE. [Concomitant]
     Active Substance: OMEPRAZOLE
     Dosage: UNK
  18. CETIRIZINE [Concomitant]
     Active Substance: CETIRIZINE HYDROCHLORIDE
     Dosage: UNK
  19. BACLOFEN. [Concomitant]
     Active Substance: BACLOFEN
     Dosage: UNK

REACTIONS (3)
  - Injection site bruising [Unknown]
  - Injection site pain [Unknown]
  - Bone pain [Unknown]

NARRATIVE: CASE EVENT DATE: 2014
